FAERS Safety Report 6104265-X (Version None)
Quarter: 2009Q1

REPORT INFORMATION
  Report Type: 
  Country: None (occurrence: None)
  Receive Date: 20090227
  Receipt Date: 20080121
  Transmission Date: 20090719
  Serious: Yes (Death)
  Sender: FDA-Public Use
  Company Number: RB-9062-2008

PATIENT
  Sex: Male

DRUGS (3)
  1. BUPRENORPHINE HYDROCHLORIDE [Suspect]
     Indication: DRUG USE FOR UNKNOWN INDICATION
  2. XANAX [Suspect]
     Indication: DRUG USE FOR UNKNOWN INDICATION
  3. COCAINE [Suspect]
     Indication: DRUG USE FOR UNKNOWN INDICATION

REACTIONS (2)
  - OVERDOSE [None]
  - SUBSTANCE ABUSE [None]
